FAERS Safety Report 5483619-9 (Version None)
Quarter: 2007Q4

REPORT INFORMATION
  Report Type: 
  Country: None (occurrence: None)
  Receive Date: 20071009
  Receipt Date: 20071001
  Transmission Date: 20080405
  Serious: Yes (Death, Hospitalization)
  Sender: FDA-Public Use
  Company Number: 163-21880-07021041

PATIENT
  Age: 79 Year
  Sex: Male

DRUGS (2)
  1. REVLIMID [Suspect]
     Indication: MYELODYSPLASTIC SYNDROME
     Dosage: 5 MG, 1 IN 1 D, ORAL, 10 MG, 1 IN 1 D, ORAL
     Route: 048
     Dates: start: 20061219, end: 20070201
  2. REVLIMID [Suspect]
     Indication: MYELODYSPLASTIC SYNDROME
     Dosage: 5 MG, 1 IN 1 D, ORAL, 10 MG, 1 IN 1 D, ORAL
     Route: 048
     Dates: start: 20070221, end: 20070410

REACTIONS (6)
  - ACUTE MYELOID LEUKAEMIA [None]
  - BLOOD COUNT ABNORMAL [None]
  - CONDITION AGGRAVATED [None]
  - DISEASE PROGRESSION [None]
  - MYELODYSPLASTIC SYNDROME [None]
  - REFRACTORY ANAEMIA [None]
